FAERS Safety Report 8372225 (Version 3)
Quarter: 2012Q4

REPORT INFORMATION
  Report Type: 
  Country: US (occurrence: US)
  Receive Date: 20120131
  Receipt Date: 20120829
  Transmission Date: 20130627
  Serious: No
  Sender: FDA-Public Use
  Company Number: US-PFIZER INC-2012022532

PATIENT
  Age: 49 Year
  Sex: Male
  Weight: 117.91 kg

DRUGS (7)
  1. CHANTIX [Suspect]
     Indication: SMOKING CESSATION THERAPY
     Dosage: 0.5 mg, 1x/day
     Route: 048
     Dates: start: 2011
  2. CHANTIX [Suspect]
     Dosage: UNK
     Route: 048
  3. INVEGA [Concomitant]
     Indication: NEUROPATHY PERIPHERAL
     Dosage: 3 mg, 1x/day
  4. ALPRAZOLAM [Concomitant]
     Dosage: 1 mg, 3x/day
  5. RAMIPRIL [Concomitant]
     Indication: HYPERTENSION
     Dosage: 10 mg, UNK
  6. AMLODIPINE [Concomitant]
     Dosage: 10 mg, UNK
  7. LITHIUM [Concomitant]
     Dosage: UNK

REACTIONS (2)
  - Weight decreased [Unknown]
  - Head injury [Unknown]
